FAERS Safety Report 17575518 (Version 5)
Quarter: 2020Q4

REPORT INFORMATION
  Report Type: Spontaneous
  Country: US (occurrence: US)
  Receive Date: 20200324
  Receipt Date: 20201230
  Transmission Date: 20210113
  Serious: Yes (Other)
  Sender: FDA-Public Use
  Company Number: US-PFIZER INC-2020063082

PATIENT
  Age: 48 Year
  Sex: Female

DRUGS (2)
  1. XELJANZ XR [Suspect]
     Active Substance: TOFACITINIB CITRATE
     Indication: RHEUMATOID ARTHRITIS
     Dosage: 11 MG, 1X/DAY, (ONCE DAILY)
     Route: 048
     Dates: start: 201912
  2. KINERET [Suspect]
     Active Substance: ANAKINRA
     Dosage: UNK

REACTIONS (5)
  - Product use issue [Unknown]
  - Sensitivity to weather change [Unknown]
  - Off label use [Unknown]
  - Depression [Unknown]
  - Therapeutic product effect incomplete [Recovering/Resolving]
